FAERS Safety Report 19651628 (Version 1)
Quarter: 2021Q3

REPORT INFORMATION
  Report Type: Spontaneous
  Country: US (occurrence: US)
  Receive Date: 20210802
  Receipt Date: 20210802
  Transmission Date: 20211014
  Serious: No
  Sender: FDA-Public Use
  Company Number: None

PATIENT
  Age: 38 Year
  Sex: Female
  Weight: 86.18 kg

DRUGS (1)
  1. TALTZ [Suspect]
     Active Substance: IXEKIZUMAB
     Indication: ANKYLOSING SPONDYLITIS
     Dosage: INJECT 160MG (2 PENS) SUBCUTANEOUSLY AT WEEK 0 THEN 80MG (1 PEN ) EVERY WEEKS THEREAFTER  AS DIRECTED
     Route: 058
     Dates: start: 202106

REACTIONS (2)
  - COVID-19 [None]
  - Therapy interrupted [None]
